FAERS Safety Report 4832651-4 (Version None)
Quarter: 2005Q4

REPORT INFORMATION
  Report Type: 
  Country: None (occurrence: None)
  Receive Date: 20051117
  Receipt Date: 20051117
  Transmission Date: 20060501
  Serious: Yes (Other)
  Sender: FDA-Public Use
  Company Number: None

PATIENT
  Age: 63 Year
  Sex: Female
  Weight: 56.6996 kg

DRUGS (3)
  1. FENTANYL [Suspect]
     Indication: COMPRESSION FRACTURE
     Dosage: 25 MCG Q 3 D
     Dates: start: 20041201
  2. FENTANYL [Suspect]
     Indication: SPINAL COLUMN STENOSIS
     Dosage: 25 MCG Q 3 D
     Dates: start: 20041201
  3. FENTANYL [Suspect]
     Dates: start: 20041201

REACTIONS (3)
  - DRUG EFFECT DECREASED [None]
  - INADEQUATE ANALGESIA [None]
  - PHARMACEUTICAL PRODUCT COMPLAINT [None]
